FAERS Safety Report 21581764 (Version 5)
Quarter: 2022Q4

REPORT INFORMATION
  Report Type: Spontaneous
  Country: US (occurrence: US)
  Receive Date: 20221111
  Receipt Date: 20221214
  Transmission Date: 20230113
  Serious: No
  Sender: FDA-Public Use
  Company Number: US-GLAXOSMITHKLINE-US2022163507

PATIENT
  Sex: Female

DRUGS (1)
  1. ZEJULA [Suspect]
     Active Substance: NIRAPARIB
     Indication: Ovarian cancer
     Dosage: 200 MG, QD
     Route: 048
     Dates: start: 20221020, end: 202212

REACTIONS (9)
  - Blood creatinine increased [Unknown]
  - Constipation [Unknown]
  - Nausea [Unknown]
  - Dry mouth [Unknown]
  - Insomnia [Unknown]
  - Blood pressure increased [Unknown]
  - Platelet count decreased [Not Recovered/Not Resolved]
  - Full blood count abnormal [Not Recovered/Not Resolved]
  - Haematotoxicity [Not Recovered/Not Resolved]
